FAERS Safety Report 5100237-2 (Version None)
Quarter: 2006Q3

REPORT INFORMATION
  Report Type: 
  Country: None (occurrence: None)
  Receive Date: 20060908
  Receipt Date: 20060831
  Transmission Date: 20061208
  Serious: Yes (Hospitalization)
  Sender: FDA-Public Use
  Company Number: US-MERCK-0609USA00163M

PATIENT
  Age: 33 Year
  Sex: Female

DRUGS (2)
  1. INDOCIN [Suspect]
     Indication: ABDOMINAL PAIN
     Route: 048
  2. INDOCIN [Suspect]
     Indication: UTERINE TENDERNESS
     Route: 048

REACTIONS (8)
  - ACUTE RESPIRATORY DISTRESS SYNDROME [None]
  - DRUG EXPOSURE DURING PREGNANCY [None]
  - HELLP SYNDROME [None]
  - HYPERTENSION [None]
  - PREMATURE RUPTURE OF MEMBRANES [None]
  - PROTEINURIA [None]
  - RENAL FAILURE ACUTE [None]
  - VAGINAL HAEMORRHAGE [None]
